FAERS Safety Report 18932434 (Version 1)
Quarter: 2021Q1

REPORT INFORMATION
  Report Type: Spontaneous
  Country: US (occurrence: US)
  Receive Date: 20210224
  Receipt Date: 20210224
  Transmission Date: 20210420
  Serious: No
  Sender: FDA-Public Use
  Company Number: US-AUROBINDO-AUR-APL-2021-006068

PATIENT
  Sex: Female

DRUGS (1)
  1. TRAZODONE [Suspect]
     Active Substance: TRAZODONE HYDROCHLORIDE
     Indication: PRODUCT USED FOR UNKNOWN INDICATION
     Dosage: UNK
     Route: 065
     Dates: start: 201901, end: 201901

REACTIONS (5)
  - Chills [Unknown]
  - Hangover [Unknown]
  - Headache [Unknown]
  - Nervousness [Unknown]
  - Dizziness [Unknown]

NARRATIVE: CASE EVENT DATE: 201901
